FAERS Safety Report 15319749 (Version 1)
Quarter: 2018Q3

REPORT INFORMATION
  Report Type: Spontaneous
  Country: US (occurrence: US)
  Receive Date: 20180827
  Receipt Date: 20180827
  Transmission Date: 20181010
  Serious: Yes (Other)
  Sender: FDA-Public Use
  Company Number: US-MALLINCKRODT-T201803522

PATIENT
  Sex: Female

DRUGS (2)
  1. FENTANYL TRANSDERMAL SYSTEM [Suspect]
     Active Substance: FENTANYL
     Indication: PAIN IN EXTREMITY
  2. FENTANYL TRANSDERMAL SYSTEM [Suspect]
     Active Substance: FENTANYL
     Indication: BACK PAIN
     Dosage: 1 PATCH EVERY 60 HOURS
     Route: 062

REACTIONS (6)
  - Cellulitis [Unknown]
  - Drug dose omission [Unknown]
  - Knee arthroplasty [Unknown]
  - Product adhesion issue [Unknown]
  - Arthropathy [Unknown]
  - Drug ineffective [Unknown]
